FAERS Safety Report 18658723 (Version 7)
Quarter: 2022Q3

REPORT INFORMATION
  Report Type: Spontaneous
  Country: GB (occurrence: GB)
  Receive Date: 20201224
  Receipt Date: 20220915
  Transmission Date: 20221027
  Serious: Yes (Other)
  Sender: FDA-Public Use
  Company Number: GB-BIOVITRUM-2020GB7885

PATIENT
  Age: 72 Year
  Sex: Female

DRUGS (44)
  1. ORFADIN [Suspect]
     Active Substance: NITISINONE
     Indication: Alkaptonuria
     Dates: start: 2012
  2. ORFADIN [Suspect]
     Active Substance: NITISINONE
     Dosage: 2 MG
     Dates: start: 2013
  3. ORFADIN [Suspect]
     Active Substance: NITISINONE
     Dosage: 2 MG
     Dates: start: 2015
  4. ORFADIN [Suspect]
     Active Substance: NITISINONE
     Dosage: 2 MG
     Dates: start: 2016
  5. ORFADIN [Suspect]
     Active Substance: NITISINONE
     Dosage: 2 MG
     Dates: start: 2017
  6. ORFADIN [Suspect]
     Active Substance: NITISINONE
     Dosage: 2 MG
     Dates: start: 2018
  7. ORFADIN [Suspect]
     Active Substance: NITISINONE
     Dosage: 2 MG
     Dates: start: 2019
  8. ORFADIN [Suspect]
     Active Substance: NITISINONE
     Dosage: 2 MG
     Dates: start: 2014
  9. ASPIRIN [Concomitant]
     Active Substance: ASPIRIN
     Dosage: 75 MG
     Dates: start: 2012
  10. ASPIRIN [Concomitant]
     Active Substance: ASPIRIN
     Dates: start: 2013
  11. ASPIRIN [Concomitant]
     Active Substance: ASPIRIN
     Dates: start: 2014
  12. ASPIRIN [Concomitant]
     Active Substance: ASPIRIN
     Dates: start: 2015
  13. ASPIRIN [Concomitant]
     Active Substance: ASPIRIN
     Dates: start: 2016
  14. ASPIRIN [Concomitant]
     Active Substance: ASPIRIN
     Dates: start: 2017
  15. OMEPRAZOLE [Concomitant]
     Active Substance: OMEPRAZOLE
     Dosage: 20 MG
     Dates: start: 2012
  16. OMEPRAZOLE [Concomitant]
     Active Substance: OMEPRAZOLE
     Dates: start: 2013
  17. OMEPRAZOLE [Concomitant]
     Active Substance: OMEPRAZOLE
     Dates: start: 2014
  18. OMEPRAZOLE [Concomitant]
     Active Substance: OMEPRAZOLE
     Dates: start: 2015
  19. OMEPRAZOLE [Concomitant]
     Active Substance: OMEPRAZOLE
     Dates: start: 2016
  20. OMEPRAZOLE [Concomitant]
     Active Substance: OMEPRAZOLE
     Dates: start: 2017
  21. SIMVASTATIN [Concomitant]
     Active Substance: SIMVASTATIN
     Dosage: 20 MG
     Dates: start: 2012
  22. SIMVASTATIN [Concomitant]
     Active Substance: SIMVASTATIN
     Dates: start: 2013
  23. SIMVASTATIN [Concomitant]
     Active Substance: SIMVASTATIN
     Dates: start: 2014
  24. SIMVASTATIN [Concomitant]
     Active Substance: SIMVASTATIN
     Dates: start: 2015
  25. SIMVASTATIN [Concomitant]
     Active Substance: SIMVASTATIN
     Dates: start: 2016
  26. SIMVASTATIN [Concomitant]
     Active Substance: SIMVASTATIN
     Dates: start: 2017
  27. SIMVASTATIN [Concomitant]
     Active Substance: SIMVASTATIN
     Dates: start: 2018
  28. SIMVASTATIN [Concomitant]
     Active Substance: SIMVASTATIN
     Dates: start: 2019
  29. CALCIUM CARBONATE\CHOLECALCIFEROL [Concomitant]
     Active Substance: CALCIUM CARBONATE\CHOLECALCIFEROL
     Dates: start: 2013
  30. CALCIUM CARBONATE\CHOLECALCIFEROL [Concomitant]
     Active Substance: CALCIUM CARBONATE\CHOLECALCIFEROL
     Dates: start: 2014
  31. CALCIUM CARBONATE\CHOLECALCIFEROL [Concomitant]
     Active Substance: CALCIUM CARBONATE\CHOLECALCIFEROL
     Dates: start: 2015
  32. CALCIUM CARBONATE\CHOLECALCIFEROL [Concomitant]
     Active Substance: CALCIUM CARBONATE\CHOLECALCIFEROL
     Dates: start: 2016
  33. CALCIUM CARBONATE\CHOLECALCIFEROL [Concomitant]
     Active Substance: CALCIUM CARBONATE\CHOLECALCIFEROL
     Dates: start: 2017
  34. CALCIUM CARBONATE\CHOLECALCIFEROL [Concomitant]
     Active Substance: CALCIUM CARBONATE\CHOLECALCIFEROL
     Dates: start: 2018
  35. CALCIUM CARBONATE\CHOLECALCIFEROL [Concomitant]
     Active Substance: CALCIUM CARBONATE\CHOLECALCIFEROL
     Dates: start: 2019
  36. VITAMINS [Concomitant]
     Active Substance: VITAMINS
     Dates: start: 2014
  37. VITAMINS [Concomitant]
     Active Substance: VITAMINS
     Dates: start: 2016
  38. VITAMINS [Concomitant]
     Active Substance: VITAMINS
     Dates: start: 2019
  39. DENOSUMAB [Concomitant]
     Active Substance: DENOSUMAB
     Dosage: 6 MONTHLY INTERVALS
     Dates: start: 2016
  40. DENOSUMAB [Concomitant]
     Active Substance: DENOSUMAB
     Dates: start: 2017
  41. DENOSUMAB [Concomitant]
     Active Substance: DENOSUMAB
     Dates: start: 2018
  42. DENOSUMAB [Concomitant]
     Active Substance: DENOSUMAB
     Dates: start: 2019
  43. ACETAMINOPHEN [Concomitant]
     Active Substance: ACETAMINOPHEN
     Dates: start: 2019
  44. ALENDRONIC ACID [Concomitant]
     Active Substance: ALENDRONIC ACID

REACTIONS (4)
  - Lenticular opacities [Not Recovered/Not Resolved]
  - Cataract [Unknown]
  - Conjunctival oedema [Not Recovered/Not Resolved]
  - Amino acid level increased [Not Recovered/Not Resolved]

NARRATIVE: CASE EVENT DATE: 20120101
